FAERS Safety Report 5390329-5 (Version None)
Quarter: 2007Q3

REPORT INFORMATION
  Report Type: 
  Country: None (occurrence: None)
  Receive Date: 20070718
  Receipt Date: 20070706
  Transmission Date: 20080115
  Serious: Yes (Other)
  Sender: FDA-Public Use
  Company Number: HU-PFIZER INC-2007043662

PATIENT
  Age: 43 Year
  Sex: Male

DRUGS (1)
  1. VARENICLINE TABLETS [Suspect]
     Indication: EX-SMOKER
     Route: 048

REACTIONS (6)
  - ANXIETY [None]
  - ASTHENIA [None]
  - LIBIDO DECREASED [None]
  - NAUSEA [None]
  - VERTIGO [None]
  - VOMITING [None]
